FAERS Safety Report 8837642 (Version 2)
Quarter: 2012Q4

REPORT INFORMATION
  Report Type: 
  Country: US (occurrence: US)
  Receive Date: 20121012
  Receipt Date: 20121102
  Transmission Date: 20130627
  Serious: No
  Sender: FDA-Public Use
  Company Number: US-009507513-1210USA004467

PATIENT
  Age: 39 None
  Sex: Female
  Weight: 150 kg

DRUGS (1)
  1. IMPLANON [Suspect]
     Indication: CONTRACEPTION
     Dosage: UNK
     Dates: start: 20090731

REACTIONS (4)
  - Metrorrhagia [Unknown]
  - Expired drug administered [Unknown]
  - Medical device complication [Unknown]
  - Medical device complication [Unknown]
